FAERS Safety Report 9412519 (Version 1)
Quarter: 2013Q3

REPORT INFORMATION
  Report Type: Spontaneous
  Country: PL (occurrence: PL)
  Receive Date: 20130722
  Receipt Date: 20130722
  Transmission Date: 20140515
  Serious: Yes (Hospitalization)
  Sender: FDA-Public Use
  Company Number: PL-TEVA-419968ISR

PATIENT
  Sex: Male
  Weight: 62 kg

DRUGS (2)
  1. CISPLATIN [Suspect]
     Indication: LUNG NEOPLASM MALIGNANT
     Dosage: 40 MILLIGRAM DAILY;
     Route: 042
     Dates: start: 20120717, end: 20120719
  2. VEPESID [Concomitant]
     Indication: LUNG NEOPLASM MALIGNANT
     Route: 042
     Dates: start: 20120717, end: 20120719

REACTIONS (2)
  - Colitis [Recovering/Resolving]
  - Neutropenia [Recovering/Resolving]
